FAERS Safety Report 6933983-6 (Version None)
Quarter: 2010Q3

REPORT INFORMATION
  Report Type: 
  Country: None (occurrence: None)
  Receive Date: 20100820
  Receipt Date: 20100809
  Transmission Date: 20110219
  Serious: Yes (Hospitalization, Other)
  Sender: FDA-Public Use
  Company Number: DE-JNJFOC-20100707447

PATIENT
  Sex: Female
  Weight: 120 kg

DRUGS (1)
  1. REMICADE [Suspect]
     Indication: PUSTULAR PSORIASIS
     Route: 042

REACTIONS (1)
  - BREAST CANCER [None]
